FAERS Safety Report 16952429 (Version 1)
Quarter: 2019Q4

REPORT INFORMATION
  Report Type: Spontaneous
  Country: US (occurrence: US)
  Receive Date: 20191023
  Receipt Date: 20191023
  Transmission Date: 20200122
  Serious: No
  Sender: FDA-Public Use
  Company Number: US-IBSA PHARMA-TIR-2019-0545

PATIENT
  Age: 48 Year
  Sex: Female

DRUGS (2)
  1. TIROSINT [Suspect]
     Active Substance: LEVOTHYROXINE SODIUM
     Dosage: 10 50MCG CAPSULES PER WEEK
     Route: 048
     Dates: start: 201906
  2. TIROSINT [Suspect]
     Active Substance: LEVOTHYROXINE SODIUM
     Indication: HYPOTHYROIDISM
     Dosage: 9 50MCG CAPSULES PER WEEK
     Route: 048
     Dates: start: 201903, end: 20190605

REACTIONS (3)
  - Drug level below therapeutic [Unknown]
  - Blood thyroid stimulating hormone increased [Unknown]
  - Product quality issue [Unknown]

NARRATIVE: CASE EVENT DATE: 201903
